FAERS Safety Report 6172237-5 (Version None)
Quarter: 2009Q2

REPORT INFORMATION
  Report Type: 
  Country: None (occurrence: None)
  Receive Date: 20090429
  Receipt Date: 20090422
  Transmission Date: 20091009
  Serious: Yes (Hospitalization)
  Sender: FDA-Public Use
  Company Number: FR-BRISTOL-MYERS SQUIBB COMPANY-14603351

PATIENT
  Age: 77 Year
  Sex: Female

DRUGS (6)
  1. CARBIDOPA + LEVODOPA [Suspect]
     Dosage: 1 DF=150-15MGTID.ALSO TOOK 100-10MGTID PO UNK-11FEB09.ON 25FEB09 DOSE REDUCED TO 100-10MGTID
     Route: 048
     Dates: start: 20090212
  2. DIGOXIN [Concomitant]
  3. FLUINDIONE [Concomitant]
  4. OLMESARTAN MEDOXOMIL [Concomitant]
  5. PROPRANOLOL HYDROCHLORIDE [Concomitant]
  6. ROSUVASTATIN CALCIUM [Concomitant]

REACTIONS (6)
  - CONFUSIONAL STATE [None]
  - FALL [None]
  - HYPOTENSION [None]
  - MALAISE [None]
  - RHABDOMYOLYSIS [None]
  - VERTIGO [None]
